FAERS Safety Report 8389862-3 (Version None)
Quarter: 2012Q2

REPORT INFORMATION
  Report Type: 
  Country: None (occurrence: None)
  Receive Date: 20120522
  Receipt Date: 20120510
  Transmission Date: 20120825
  Serious: Yes (Other)
  Sender: FDA-Public Use
  Company Number: DSA_57098_2012

PATIENT
  Sex: Male

DRUGS (1)
  1. WELLBUTRIN [Suspect]
     Indication: PAIN
     Dosage: (DF ORAL)
     Route: 048
     Dates: start: 20080101

REACTIONS (4)
  - DRUG DOSE OMISSION [None]
  - DRUG DEPENDENCE [None]
  - DEPRESSION [None]
  - PANIC ATTACK [None]
